FAERS Safety Report 20905168 (Version 1)
Quarter: 2022Q2

REPORT INFORMATION
  Report Type: Spontaneous
  Country: US (occurrence: None)
  Receive Date: 20220601
  Receipt Date: 20220601
  Transmission Date: 20220720
  Serious: Yes (Other)
  Sender: FDA-Public Use
  Company Number: None

PATIENT
  Age: 39 Year
  Sex: Female
  Weight: 77.4 kg

DRUGS (14)
  1. PAXLOVID [Suspect]
     Active Substance: NIRMATRELVIR\RITONAVIR
     Indication: COVID-19
     Dates: start: 20220515, end: 20220520
  2. AZATHIOPRINE [Concomitant]
     Active Substance: AZATHIOPRINE
  3. LEVOXYL [Concomitant]
     Active Substance: LEVOTHYROXINE SODIUM
  4. CYTOMEL [Concomitant]
     Active Substance: LIOTHYRONINE SODIUM
  5. PROGESTERONE [Concomitant]
     Active Substance: PROGESTERONE
  6. GUANFACINE [Concomitant]
     Active Substance: GUANFACINE
  7. CONCERTA [Concomitant]
     Active Substance: METHYLPHENIDATE HYDROCHLORIDE
  8. ZYRTEC [Concomitant]
     Active Substance: CETIRIZINE HYDROCHLORIDE
  9. PEPCID [Concomitant]
     Active Substance: FAMOTIDINE
  10. Prenatal vitamin [Concomitant]
  11. MAGNESIUM [Concomitant]
     Active Substance: MAGNESIUM
  12. Super B complex with zinc [Concomitant]
  13. VITAMIN C [Concomitant]
     Active Substance: ASCORBIC ACID
  14. Low dose aspirin [Concomitant]

REACTIONS (3)
  - Rebound effect [None]
  - Oropharyngeal discomfort [None]
  - COVID-19 [None]

NARRATIVE: CASE EVENT DATE: 20220529
